FAERS Safety Report 16399283 (Version 1)
Quarter: 2019Q2

REPORT INFORMATION
  Report Type: Spontaneous
  Country: GH (occurrence: GH)
  Receive Date: 20190606
  Receipt Date: 20190606
  Transmission Date: 20190711
  Serious: Yes (Hospitalization)
  Sender: FDA-Public Use
  Company Number: GH-009507513-0211USA02133

PATIENT
  Age: 23 Year
  Sex: Female

DRUGS (2)
  1. ALBENDAZOLE. [Suspect]
     Active Substance: ALBENDAZOLE
     Dosage: 1 DOSAGE FORM, ONCE
     Route: 048
     Dates: start: 20020418, end: 20020418
  2. STROMECTOL [Suspect]
     Active Substance: IVERMECTIN
     Dosage: 3 TABLETS, ONCE
     Route: 048
     Dates: start: 20020418, end: 20020418

REACTIONS (5)
  - Lip ulceration [Not Recovered/Not Resolved]
  - Blister [Recovered/Resolved]
  - Stevens-Johnson syndrome [Recovered/Resolved with Sequelae]
  - Mucosal inflammation [Recovered/Resolved]
  - Rash [Recovered/Resolved]

NARRATIVE: CASE EVENT DATE: 20020419
